FAERS Safety Report 6669578-1 (Version None)
Quarter: 2010Q2

REPORT INFORMATION
  Report Type: 
  Country: None (occurrence: None)
  Receive Date: 20100406
  Receipt Date: 20100325
  Transmission Date: 20101027
  Serious: Yes (Hospitalization)
  Sender: FDA-Public Use
  Company Number: FR-PFIZER INC-2010038151

PATIENT
  Age: 13 Year
  Sex: Female

DRUGS (4)
  1. RELPAX [Suspect]
     Indication: INTENTIONAL DRUG MISUSE
     Dosage: 400 MG, SINGLE
     Route: 048
     Dates: start: 20100314, end: 20100314
  2. ESCITALOPRAM [Concomitant]
     Indication: DEPRESSION
     Dosage: 10 MG, DAILY
     Dates: start: 20100101
  3. RISPERDAL [Concomitant]
     Dosage: 1 MG, DAILY
     Dates: start: 20100101
  4. LYSANXIA [Concomitant]
     Dosage: 15 MG, DAILY
     Dates: start: 20100101

REACTIONS (1)
  - ATRIOVENTRICULAR BLOCK FIRST DEGREE [None]
